FAERS Safety Report 5019394-1 (Version None)
Quarter: 2006Q2

REPORT INFORMATION
  Report Type: 
  Country: None (occurrence: None)
  Receive Date: 20060601
  Receipt Date: 20060518
  Transmission Date: 20061013
  Serious: Yes (Hospitalization)
  Sender: FDA-Public Use
  Company Number: 2006BI007297

PATIENT
  Age: 57 Year
  Sex: Male
  Weight: 68.0396 kg

DRUGS (2)
  1. AVONEX [Suspect]
     Indication: MULTIPLE SCLEROSIS
     Dosage: 30 UG;QW;IM
     Route: 030
     Dates: start: 19960101
  2. AVONEX [Suspect]
     Indication: MULTIPLE SCLEROSIS
     Dosage: 30 UG;QW;IM
     Route: 030

REACTIONS (8)
  - BLADDER DISORDER [None]
  - BODY TEMPERATURE INCREASED [None]
  - DEPRESSION [None]
  - HEART RATE INCREASED [None]
  - PARANOIA [None]
  - PROSTATIC DISORDER [None]
  - PURULENCE [None]
  - URINARY TRACT INFECTION [None]
